FAERS Safety Report 18156376 (Version 2)
Quarter: 2020Q3

REPORT INFORMATION
  Report Type: Spontaneous
  Country: US (occurrence: US)
  Receive Date: 20200817
  Receipt Date: 20200828
  Transmission Date: 20201103
  Serious: No
  Sender: FDA-Public Use
  Company Number: US-PFIZER INC-2020309792

PATIENT
  Age: 64 Year
  Sex: Male
  Weight: 83.91 kg

DRUGS (3)
  1. LYRICA [Concomitant]
     Active Substance: PREGABALIN
     Indication: NEURALGIA
     Dosage: 75 MG, 2X/DAY (75MG TWICE A DAY)
     Dates: start: 2016
  2. CELEBREX [Suspect]
     Active Substance: CELECOXIB
     Indication: BACK INJURY
     Dosage: 200 MG, 1X/DAY (HE TAKES IT AT NIGHT)
     Route: 048
     Dates: start: 2012, end: 202004
  3. CELEBREX [Suspect]
     Active Substance: CELECOXIB
     Indication: BACK PAIN

REACTIONS (1)
  - Pain [Unknown]
